FAERS Safety Report 10509454 (Version 1)
Quarter: 2014Q4

REPORT INFORMATION
  Report Type: Report from Study
  Country: US (occurrence: US)
  Receive Date: 20141009
  Receipt Date: 20141009
  Transmission Date: 20150528
  Serious: Yes (Other)
  Sender: FDA-Public Use
  Company Number: PHEH2014US019901

PATIENT
  Sex: Female

DRUGS (1)
  1. MYFORTIC [Suspect]
     Active Substance: MYCOPHENOLATE SODIUM
     Indication: PRODUCT USED FOR UNKNOWN INDICATION
     Dosage: 360 MG, Q12H
     Route: 048
     Dates: start: 2005

REACTIONS (5)
  - Cerebral haemorrhage [Recovered/Resolved]
  - Syncope [Unknown]
  - Headache [Unknown]
  - Fall [Unknown]
  - Head injury [Unknown]
